FAERS Safety Report 11416522 (Version 2)
Quarter: 2015Q4

REPORT INFORMATION
  Report Type: Spontaneous
  Country: BR (occurrence: BR)
  Receive Date: 20150825
  Receipt Date: 20151120
  Transmission Date: 20160304
  Serious: Yes (Other)
  Sender: FDA-Public Use
  Company Number: BR-JNJFOC-20150815886

PATIENT
  Age: 52 Year
  Sex: Female

DRUGS (1)
  1. SIMPONI [Suspect]
     Active Substance: GOLIMUMAB
     Indication: RHEUMATOID ARTHRITIS
     Dosage: USING GOLIMUMAB FOR 6 MONTHS
     Route: 058
     Dates: start: 201506

REACTIONS (4)
  - Blood pressure increased [Unknown]
  - Blood pressure fluctuation [Unknown]
  - Depression [Unknown]
  - Panic attack [Unknown]

NARRATIVE: CASE EVENT DATE: 201506
